FAERS Safety Report 5948203-9 (Version None)
Quarter: 2008Q4

REPORT INFORMATION
  Report Type: 
  Country: None (occurrence: None)
  Receive Date: 20081111
  Receipt Date: 20081030
  Transmission Date: 20090506
  Serious: Yes (Hospitalization)
  Sender: FDA-Public Use
  Company Number: AU-CELGENEUS-008-C5013-07040805

PATIENT
  Sex: Male
  Weight: 86.3 kg

DRUGS (11)
  1. REVLIMID [Interacting]
     Indication: MULTIPLE MYELOMA
     Route: 048
     Dates: start: 20070331, end: 20070415
  2. DEXAMETHASONE TAB [Suspect]
     Indication: MULTIPLE MYELOMA
     Dates: start: 20070331, end: 20070411
  3. CIPRAMIL [Interacting]
     Indication: DEPRESSION
     Route: 065
     Dates: start: 20030101, end: 20070418
  4. OROXINE [Concomitant]
     Indication: THYROID THERAPY
     Route: 065
  5. AVAPRO [Concomitant]
     Indication: BLOOD PRESSURE
     Route: 065
  6. DUPHALAC [Concomitant]
     Indication: LAXATIVE SUPPORTIVE CARE
     Route: 065
  7. MS CONTIN [Concomitant]
     Route: 065
  8. SOMAC [Concomitant]
     Route: 065
  9. SOMAC [Concomitant]
  10. ACETAMINOPHEN [Concomitant]
     Route: 065
  11. BONEFOS [Concomitant]
     Indication: DRUG USE FOR UNKNOWN INDICATION
     Route: 065

REACTIONS (4)
  - DRUG INTERACTION [None]
  - RENAL FAILURE ACUTE [None]
  - RHABDOMYOLYSIS [None]
  - SEROTONIN SYNDROME [None]
